FAERS Safety Report 7284087-7 (Version None)
Quarter: 2011Q1

REPORT INFORMATION
  Report Type: 
  Country: None (occurrence: None)
  Receive Date: 20110209
  Receipt Date: 20110207
  Transmission Date: 20110831
  Serious: Yes (Other)
  Sender: FDA-Public Use
  Company Number: US-PFIZER INC-2011027065

PATIENT
  Age: 70 Year
  Sex: Female

DRUGS (1)
  1. ZIPRASIDONE MESILATE [Suspect]
     Dosage: 20 MG, SINGLE
     Route: 030

REACTIONS (1)
  - ATRIOVENTRICULAR BLOCK COMPLETE [None]
